FAERS Safety Report 12882818 (Version 2)
Quarter: 2016Q4

REPORT INFORMATION
  Report Type: Spontaneous
  Country: CH (occurrence: CH)
  Receive Date: 20161025
  Receipt Date: 20161103
  Transmission Date: 20170207
  Serious: Yes (Other)
  Sender: FDA-Public Use
  Company Number: CH-LPDUSPRD-20160925

PATIENT
  Age: 31 Year
  Sex: Female

DRUGS (1)
  1. FERINJECT [Suspect]
     Active Substance: FERRIC CARBOXYMALTOSE
     Dosage: 500 MG,UNK DILUTION
     Route: 041
     Dates: start: 20160825

REACTIONS (2)
  - Vertigo [Unknown]
  - Dizziness [Unknown]

NARRATIVE: CASE EVENT DATE: 2016
